FAERS Safety Report 8011066-4 (Version None)
Quarter: 2011Q4

REPORT INFORMATION
  Report Type: 
  Country: None (occurrence: None)
  Receive Date: 20111228
  Receipt Date: 20111108
  Transmission Date: 20120403
  Serious: Yes (Hospitalization)
  Sender: FDA-Public Use
  Company Number: JP-ROCHE-GNE321762

PATIENT
  Sex: Female
  Weight: 63.061 kg

DRUGS (1)
  1. OMALIZUMAB [Suspect]
     Indication: ASTHMA
     Route: 058
     Dates: start: 20110425, end: 20110620

REACTIONS (7)
  - PANCYTOPENIA [None]
  - BLOOD FIBRINOGEN INCREASED [None]
  - BONE MARROW FAILURE [None]
  - PAROXYSMAL NOCTURNAL HAEMOGLOBINURIA [None]
  - LYMPHOCYTE COUNT INCREASED [None]
  - RETINAL HAEMORRHAGE [None]
  - APLASTIC ANAEMIA [None]
